FAERS Safety Report 5161109-0 (Version None)
Quarter: 2006Q4

REPORT INFORMATION
  Report Type: 
  Country: None (occurrence: None)
  Receive Date: 20061121
  Receipt Date: 20061103
  Transmission Date: 20070319
  Serious: Yes (Death, Hospitalization, Other)
  Sender: FDA-Public Use
  Company Number: 8016685

PATIENT
  Age: 9 Year
  Sex: Female
  Weight: 49 kg

DRUGS (2)
  1. KEPPRA [Suspect]
     Indication: EPILEPSY
     Dosage: 250 MG /D
     Dates: start: 20060301
  2. VALPROIC ACID [Concomitant]

REACTIONS (11)
  - CARDIAC FAILURE [None]
  - CEREBRAL INFARCTION [None]
  - HEAT STROKE [None]
  - HEPATIC NECROSIS [None]
  - IDIOSYNCRATIC DRUG REACTION [None]
  - METABOLIC DISORDER [None]
  - MITOCHONDRIAL CYTOPATHY [None]
  - MULTI-ORGAN FAILURE [None]
  - RENAL FAILURE [None]
  - RHABDOMYOLYSIS [None]
  - STATUS EPILEPTICUS [None]
